FAERS Safety Report 9638560 (Version 1)
Quarter: 2013Q4

REPORT INFORMATION
  Report Type: Spontaneous
  Country: TN (occurrence: TN)
  Receive Date: 20131022
  Receipt Date: 20131022
  Transmission Date: 20140711
  Serious: Yes (Hospitalization)
  Sender: FDA-Public Use
  Company Number: TN-ROXANE LABORATORIES, INC.-2013-RO-01708RO

PATIENT
  Age: 58 Year
  Sex: Female

DRUGS (2)
  1. LITHIUM CARBONATE [Suspect]
     Indication: BIPOLAR DISORDER
     Dosage: 700 MG
  2. LEVOMEPROMAZINE [Suspect]
     Indication: BIPOLAR DISORDER
     Dosage: 50 MG

REACTIONS (3)
  - Bronchial disorder [Unknown]
  - Cerebellar syndrome [Not Recovered/Not Resolved]
  - Hyperthermia [Unknown]
